FAERS Safety Report 5818703-0 (Version None)
Quarter: 2008Q3

REPORT INFORMATION
  Report Type: 
  Country: None (occurrence: None)
  Receive Date: 20080723
  Receipt Date: 20080618
  Transmission Date: 20090109
  Serious: No
  Sender: FDA-Public Use
  Company Number: US-BAYER-200827032NA

PATIENT
  Age: 45 Year
  Sex: Female
  Weight: 159 kg

DRUGS (2)
  1. MAGNEVIST [Suspect]
     Indication: NUCLEAR MAGNETIC RESONANCE IMAGING
     Dosage: TOTAL DAILY DOSE: 20 ML  UNIT DOSE: 20 ML
     Route: 042
     Dates: start: 20080611, end: 20080611
  2. MAGNEVIST [Suspect]
     Dosage: AS USED: 3 ML  UNIT DOSE: 15 ML
     Route: 042
     Dates: start: 20080611, end: 20080611

REACTIONS (2)
  - INJECTION SITE INFLAMMATION [None]
  - INJECTION SITE REACTION [None]
